FAERS Safety Report 15230052 (Version 1)
Quarter: 2018Q3

REPORT INFORMATION
  Report Type: Spontaneous
  Country: US (occurrence: US)
  Receive Date: 20180802
  Receipt Date: 20180802
  Transmission Date: 20181010
  Serious: Yes (Other)
  Sender: FDA-Public Use
  Company Number: US-ACCORD-063018

PATIENT
  Age: 49 Year
  Sex: Female
  Weight: 110.68 kg

DRUGS (16)
  1. DOCETAXEL ACCORD [Suspect]
     Active Substance: DOCETAXEL
     Indication: BREAST CANCER STAGE II
     Dosage: NO OF CYCLE: 04
     Dates: start: 20120217, end: 20120420
  2. DOXORUBICIN [Suspect]
     Active Substance: DOXORUBICIN
     Indication: BREAST CANCER STAGE II
     Dosage: NO OF CYCLE: 04?PRIMARY FLUIDS: 250ML NS?IVP
  3. ATIVAN [Concomitant]
     Active Substance: LORAZEPAM
  4. ATROPINE. [Concomitant]
     Active Substance: ATROPINE
  5. TAGAMET [Concomitant]
     Active Substance: CIMETIDINE
  6. ANZEMET [Concomitant]
     Active Substance: DOLASETRON MESYLATE
  7. DECADRON [Concomitant]
     Active Substance: DEXAMETHASONE
     Dosage: DILUTED IN 100ML NS
  8. ZOFRAN [Concomitant]
     Active Substance: ONDANSETRON HYDROCHLORIDE
  9. NEULASTA [Concomitant]
     Active Substance: PEGFILGRASTIM
     Dosage: DOSAGE: 6??ADMINISTRATION TIME: SQ
  10. TAMOXIFEN [Concomitant]
     Active Substance: TAMOXIFEN
     Dates: start: 20120501
  11. BENADRYL [Concomitant]
     Active Substance: DIPHENHYDRAMINE HYDROCHLORIDE
  12. CYTOXAN [Suspect]
     Active Substance: CYCLOPHOSPHAMIDE
     Indication: BREAST CANCER STAGE II
     Dosage: NO OF CYCLE: 04?DILUTED IN 250ML NS
  13. EMEND [Concomitant]
     Active Substance: APREPITANT
     Dosage: DILUTED IN 150ML NS
  14. ALOXI [Concomitant]
     Active Substance: PALONOSETRON HYDROCHLORIDE
  15. TYLENOL [Concomitant]
     Active Substance: ACETAMINOPHEN
  16. CATHFLO ACTIVASE [Concomitant]
     Active Substance: ALTEPLASE

REACTIONS (1)
  - Alopecia [Not Recovered/Not Resolved]

NARRATIVE: CASE EVENT DATE: 201211
